FAERS Safety Report 5335038-3 (Version None)
Quarter: 2007Q2

REPORT INFORMATION
  Report Type: 
  Country: None (occurrence: None)
  Receive Date: 20070525
  Receipt Date: 20070522
  Transmission Date: 20071010
  Serious: Yes (Other)
  Sender: FDA-Public Use
  Company Number: A0652350A

PATIENT
  Age: 53 Year
  Sex: Female

DRUGS (5)
  1. WELLBUTRIN [Suspect]
     Indication: DEPRESSION
     Dosage: 150MG PER DAY
     Route: 048
     Dates: start: 20070501
  2. ZIAC [Concomitant]
  3. LIPITOR [Concomitant]
  4. CAMPRAL [Concomitant]
  5. XANAX [Concomitant]

REACTIONS (4)
  - AGGRESSION [None]
  - ANXIETY [None]
  - PHOTOPSIA [None]
  - VISUAL DISTURBANCE [None]
